FAERS Safety Report 5219996-3 (Version None)
Quarter: 2007Q1

REPORT INFORMATION
  Report Type: 
  Country: None (occurrence: None)
  Receive Date: 20070125
  Receipt Date: 20070119
  Transmission Date: 20070707
  Serious: Yes (Other)
  Sender: FDA-Public Use
  Company Number: US-PFIZER INC-2007005794

PATIENT
  Sex: Female
  Weight: 65.8 kg

DRUGS (4)
  1. CHANTIX [Suspect]
     Indication: SMOKING CESSATION THERAPY
     Dates: start: 20070101, end: 20070101
  2. CLONAZEPAM [Concomitant]
  3. METOCLOPRAMIDE [Concomitant]
     Indication: GASTRIC DISORDER
  4. SYNTHROID [Concomitant]
     Indication: HYPOTHYROIDISM

REACTIONS (3)
  - BLOOD GLUCOSE INCREASED [None]
  - CONSTIPATION [None]
  - NAUSEA [None]
